FAERS Safety Report 9837147 (Version 2)
Quarter: 2014Q2

REPORT INFORMATION
  Report Type: Spontaneous
  Country: US (occurrence: None)
  Receive Date: 20131205
  Receipt Date: 20140416
  Transmission Date: 20141212
  Serious: Yes (Other)
  Sender: FDA-Public Use
  Company Number: 163-POMAL-13083870

PATIENT
  Age: 57 Year
  Sex: Female
  Weight: 90.7 kg

DRUGS (9)
  1. POMALYST [Suspect]
     Indication: PLASMA CELL MYELOMA
     Dosage: 4MG, 21 IN 21 D, PO
     Route: 048
     Dates: start: 20130628
  2. ATENOLOL (ATENOLOL) (TABLETS) [Concomitant]
  3. HYDROCHLOROTHIAZIDE (HYDROCHLOROTHIAZIDE) (TABLETS) [Concomitant]
  4. OXYCODONE-ACETAMINOPHEN (OXYCOCET) [Concomitant]
  5. WARFARIN SODIUM (WARFARIN SODIUM) (TABLET) [Concomitant]
  6. POTASSIUM (POTASSIUM) (TABLETS) [Concomitant]
  7. OXYCONTIN (OXYCODONE HYDROCHLORIDE) (TABLETS) [Concomitant]
  8. VITAMIN D (ERGOCALCIFEROL) [Concomitant]
  9. VITAMIN B12 (CYANOCOBALAMIN) (TABLETS) [Concomitant]

REACTIONS (4)
  - Head deformity [None]
  - Plasmacytoma [None]
  - Back pain [None]
  - Musculoskeletal chest pain [None]
